FAERS Safety Report 6576394-8 (Version None)
Quarter: 2010Q1

REPORT INFORMATION
  Report Type: 
  Country: None (occurrence: None)
  Receive Date: 20100210
  Receipt Date: 20100105
  Transmission Date: 20100710
  Serious: Yes (Death)
  Sender: FDA-Public Use
  Company Number: US-TYCO HEALTHCARE/MALLINCKRODT-T201000525

PATIENT
  Age: 31 Year
  Sex: Male

DRUGS (6)
  1. OXYCODONE HCL [Suspect]
     Dosage: UNK
  2. PHENCYCLIDINE [Suspect]
     Dosage: UNK
  3. METHYLENEDIOXYMETHAMPHETAMINE [Suspect]
     Dosage: UNK
  4. ETHANOL [Suspect]
     Dosage: UNK
  5. STIMULANTS [Suspect]
     Dosage: UNK
  6. STREET DRUGS [Suspect]
     Dosage: UNK

REACTIONS (2)
  - CARDIO-RESPIRATORY ARREST [None]
  - DRUG ABUSE [None]
